FAERS Safety Report 7713751-8 (Version None)
Quarter: 2011Q3

REPORT INFORMATION
  Report Type: 
  Country: None (occurrence: None)
  Receive Date: 20110826
  Receipt Date: 20110825
  Transmission Date: 20111222
  Serious: Yes (Disabling, Other)
  Sender: FDA-Public Use
  Company Number: US-PFIZER INC-2011198056

PATIENT
  Sex: Female

DRUGS (6)
  1. LIPITOR [Suspect]
     Dosage: 80 MG, UNK
     Dates: start: 20010101
  2. METOPROLOL [Concomitant]
     Dosage: 50 MG ONE TABLET IN MORNING AND HALF TABLET AT NIGHT, 2X/DAY
  3. LIPITOR [Suspect]
     Dosage: 20 MG, UNK
     Dates: start: 19980101
  4. ASPIRIN [Concomitant]
     Dosage: 81 MG, DAILY
  5. LIPITOR [Suspect]
     Dosage: 40 MG, UNK
     Dates: start: 19990101
  6. LIPITOR [Suspect]
     Indication: BLOOD CHOLESTEROL INCREASED
     Dosage: 10 MG, DAILY
     Dates: start: 19970101

REACTIONS (5)
  - PAIN [None]
  - MALAISE [None]
  - GAIT DISTURBANCE [None]
  - DYSSTASIA [None]
  - CONDITION AGGRAVATED [None]
